FAERS Safety Report 5416035-6 (Version None)
Quarter: 2007Q3

REPORT INFORMATION
  Report Type: 
  Country: None (occurrence: None)
  Receive Date: 20070718
  Receipt Date: 20070123
  Transmission Date: 20080115
  Serious: Yes (Other)
  Sender: FDA-Public Use
  Company Number: 2007006752

PATIENT
  Age: 77 Year
  Sex: Female
  Weight: 55.8 kg

DRUGS (15)
  1. CELEBREX [Suspect]
     Indication: PAIN
     Dosage: 200 MG (200 MG,1 IN 1 D)
     Dates: start: 20070123
  2. ACETYLSALICYLIC ACID SRT [Concomitant]
  3. PREDNSONE [Concomitant]
  4. FERROUS SULFATE TAB [Concomitant]
  5. POTASSIUM CHLORIDE [Concomitant]
  6. GABATRIL (TIAGABINE HYDROCHLORIDE) [Concomitant]
  7. CALCIUM (CALCIUM) [Concomitant]
  8. COZAAR [Concomitant]
  9. BUMEX [Concomitant]
  10. DONNATAL [Concomitant]
  11. ZANTAC 150 [Concomitant]
  12. NEXIUM [Concomitant]
  13. LOVASTATIN [Concomitant]
  14. ACTONEL [Concomitant]
  15. OXYGEN (OXYGEN) [Concomitant]

REACTIONS (4)
  - ANGINA PECTORIS [None]
  - ASTHENIA [None]
  - HYPERSENSITIVITY [None]
  - MUSCLE STRAIN [None]
